FAERS Safety Report 19872796 (Version 7)
Quarter: 2022Q1

REPORT INFORMATION
  Report Type: Other
  Country: ES (occurrence: ES)
  Receive Date: 20210923
  Receipt Date: 20220107
  Transmission Date: 20220424
  Serious: Yes (Other)
  Sender: FDA-Public Use
  Company Number: ES-ROCHE-2911858

PATIENT
  Age: 18 Year
  Sex: Male

DRUGS (5)
  1. ERLOTINIB [Suspect]
     Active Substance: ERLOTINIB
     Indication: Renal cancer
     Route: 048
  2. ERLOTINIB [Suspect]
     Active Substance: ERLOTINIB
     Indication: Leiomyoma
  3. AVASTIN [Suspect]
     Active Substance: BEVACIZUMAB
     Indication: Renal cancer
     Dosage: 10 MG/M2, TWICE WEEKLY (REPORTED AS BIWEEKLY)
     Route: 065
  4. AVASTIN [Suspect]
     Active Substance: BEVACIZUMAB
     Indication: Leiomyoma
  5. LEVOTHYROXINE [Concomitant]
     Active Substance: LEVOTHYROXINE
     Indication: Hypothyroidism
     Dosage: UNK UNK, UNKNOWN FREQ.
     Route: 065

REACTIONS (4)
  - Hypothyroidism [Unknown]
  - Malignant neoplasm progression [Unknown]
  - Dermatitis acneiform [Unknown]
  - Drug ineffective [Unknown]
